FAERS Safety Report 4959902-X (Version None)
Quarter: 2006Q1

REPORT INFORMATION
  Report Type: 
  Country: None (occurrence: None)
  Receive Date: 20060331
  Receipt Date: 20060323
  Transmission Date: 20060701
  Serious: Yes (Disabling)
  Sender: FDA-Public Use
  Company Number: US-MERCK-0603USA03766

PATIENT
  Age: 79 Year
  Sex: Male

DRUGS (2)
  1. VIOXX [Suspect]
     Indication: ARTHRALGIA
     Route: 048
     Dates: start: 20000901, end: 20040401
  2. VIOXX [Suspect]
     Route: 048
     Dates: start: 20000901, end: 20040401

REACTIONS (3)
  - CEREBROVASCULAR ACCIDENT [None]
  - POLYTRAUMATISM [None]
  - TRANSIENT ISCHAEMIC ATTACK [None]
